FAERS Safety Report 7249771-X (Version None)
Quarter: 2011Q1

REPORT INFORMATION
  Report Type: 
  Country: None (occurrence: None)
  Receive Date: 20110128
  Receipt Date: 20100316
  Transmission Date: 20110831
  Serious: No
  Sender: FDA-Public Use
  Company Number: A0850450A

PATIENT
  Age: 45 Year
  Sex: Female

DRUGS (3)
  1. MULTIPLE MEDICATIONS [Concomitant]
  2. WELLBUTRIN [Suspect]
     Route: 048
     Dates: start: 20010101, end: 20060101
  3. BUPROPION HYDROCHLORIDE [Suspect]
     Dosage: 100MG PER DAY
     Route: 048
     Dates: start: 20060101, end: 20060101

REACTIONS (3)
  - FEELING JITTERY [None]
  - AGITATION [None]
  - THERAPEUTIC RESPONSE UNEXPECTED [None]
